FAERS Safety Report 13951997 (Version 1)
Quarter: 2017Q3

REPORT INFORMATION
  Report Type: Spontaneous
  Country: ES (occurrence: ES)
  Receive Date: 20170910
  Receipt Date: 20170910
  Transmission Date: 20171128
  Serious: Yes (Other)
  Sender: FDA-Public Use
  Company Number: ES-BAUSCH-BL-2017-026228

PATIENT
  Age: 62 Year
  Sex: Female
  Weight: 72 kg

DRUGS (5)
  1. YELLOX 0.9 MG/ML EYE DROPS, SOLUTION [Suspect]
     Active Substance: BROMFENAC SODIUM
     Indication: CATARACT OPERATION
     Dosage: 0.9 MG/ML
     Route: 047
     Dates: start: 20170801
  2. EXVIERA 250 MG COMPRIMIDOS RECUBIERTOS CON PELICULA 56 COMPRIMIDO S [Suspect]
     Active Substance: DASABUVIR SODIUM MONOHYDRATE
     Indication: HEPATITIS C
     Route: 048
     Dates: start: 20170728
  3. FORMOTEROL ALDO-UNION 12 MCG POLVO PARA INHALACION , 60 CAPSULAS DE IN [Concomitant]
     Indication: BRONCHITIS
     Route: 055
     Dates: start: 20161001
  4. VIEKIRAX 12,5 MG/ 75 MG/ 50 MG COMPRIMIDOS RECUBIERTOS CON PELICULA 56 [Suspect]
     Active Substance: OMBITASVIR\PARITAPREVIR\RITONAVIR
     Indication: HEPATITIS C
     Route: 048
     Dates: start: 20170728
  5. VIGAMOX [Suspect]
     Active Substance: MOXIFLOXACIN HYDROCHLORIDE
     Indication: CATARACT OPERATION
     Route: 047
     Dates: start: 20170801

REACTIONS (2)
  - Vomiting [Recovered/Resolved]
  - Resting tremor [Recovered/Resolved]

NARRATIVE: CASE EVENT DATE: 201708
